FAERS Safety Report 4661289-7 (Version None)
Quarter: 2005Q2

REPORT INFORMATION
  Report Type: 
  Country: None (occurrence: None)
  Receive Date: 20050513
  Receipt Date: 20050511
  Transmission Date: 20051028
  Serious: Yes (Other)
  Sender: FDA-Public Use
  Company Number: JP-BRISTOL-MYERS SQUIBB COMPANY-12963559

PATIENT
  Age: 73 Year
  Sex: Female

DRUGS (2)
  1. TAXOL [Suspect]
     Indication: NEOPLASM MALIGNANT
     Route: 042
     Dates: start: 20050401, end: 20050401
  2. PARAPLATIN [Suspect]
     Indication: NEOPLASM MALIGNANT
     Route: 042
     Dates: start: 20050401, end: 20050401

REACTIONS (1)
  - DIPLOPIA [None]
